FAERS Safety Report 16666571 (Version 1)
Quarter: 2019Q3

REPORT INFORMATION
  Report Type: Report from Study
  Country: US (occurrence: US)
  Receive Date: 20190805
  Receipt Date: 20190805
  Transmission Date: 20191004
  Serious: Yes (Hospitalization)
  Sender: FDA-Public Use
  Company Number: US-ROCHE-2368994

PATIENT
  Sex: Female

DRUGS (1)
  1. VALCYTE [Suspect]
     Active Substance: VALGANCICLOVIR HYDROCHLORIDE
     Indication: GASTROENTERITIS VIRAL
     Dosage: FROM SMN SIGNED:  01/FEB/2019
     Route: 048

REACTIONS (3)
  - Viral infection [Unknown]
  - Off label use [Unknown]
  - Intentional product use issue [Unknown]
